FAERS Safety Report 14466107 (Version 1)
Quarter: 2018Q1

REPORT INFORMATION
  Report Type: Report from Study
  Country: DE (occurrence: DE)
  Receive Date: 20180131
  Receipt Date: 20180131
  Transmission Date: 20180509
  Serious: Yes (Other)
  Sender: FDA-Public Use
  Company Number: DE-VIFOR (INTERNATIONAL) INC.-VIT-2018-01003

PATIENT
  Sex: Male
  Weight: 60 kg

DRUGS (5)
  1. FERRLECIT [Concomitant]
     Active Substance: SODIUM FERRIC GLUCONATE COMPLEX
     Indication: NEPHROGENIC ANAEMIA
     Dates: start: 20151016
  2. EPOETIN ZETA [Concomitant]
     Active Substance: ERYTHROPOIETIN
     Indication: NEPHROGENIC ANAEMIA
     Dates: start: 20151209
  3. MIMPARA [Concomitant]
     Active Substance: CINACALCET HYDROCHLORIDE
     Dates: start: 20090209
  4. VELPHORO [Suspect]
     Active Substance: FERRIC OXYHYDROXIDE
     Indication: HYPERPHOSPHATAEMIA
     Route: 048
     Dates: start: 20160219
  5. BONDIOL [Concomitant]
     Active Substance: ALFACALCIDOL
     Indication: HYPERPARATHYROIDISM SECONDARY
     Dates: start: 20080715

REACTIONS (1)
  - Gastrointestinal haemorrhage [Unknown]

NARRATIVE: CASE EVENT DATE: 20170817
